FAERS Safety Report 7575117-3 (Version None)
Quarter: 2011Q2

REPORT INFORMATION
  Report Type: 
  Country: None (occurrence: None)
  Receive Date: 20110627
  Receipt Date: 20091107
  Transmission Date: 20111010
  Serious: Yes (Hospitalization, Other)
  Sender: FDA-Public Use
  Company Number: US-BAYER-200938897NA

PATIENT
  Age: 43 Year
  Sex: Male
  Weight: 135 kg

DRUGS (34)
  1. GLUCOPHAGE [Concomitant]
     Dosage: 1000 MG, BID
     Route: 048
     Dates: start: 20000101
  2. SPIRONOLACTONE [Concomitant]
     Dosage: 25 MG, QD
     Route: 048
  3. DIGOXIN [Concomitant]
     Dosage: 0.25 MG, QD
     Route: 048
  4. BUMEX [Concomitant]
     Dosage: 4 MG, QD
     Route: 048
  5. LOVENOX [Concomitant]
     Dosage: UNK
     Route: 058
     Dates: start: 20050616, end: 20050623
  6. TRASYLOL [Suspect]
     Indication: AORTIC VALVE REPAIR
     Dosage: 2 MILLION UNIT LOADING DOSE
     Route: 042
     Dates: start: 20050807, end: 20050807
  7. HEPARIN [Concomitant]
     Dosage: 500 UNITS/ HOURS
     Route: 042
     Dates: start: 20050807
  8. CARVEDILOL [Concomitant]
     Dosage: 6.25 MG, QD
     Route: 048
     Dates: start: 20050630, end: 20050708
  9. CAPTOPRIL [Concomitant]
     Dosage: 12.5 MG, BID
     Route: 048
     Dates: start: 20050701
  10. ENALAPRIL MALEATE [Concomitant]
     Dosage: 2.5 MG, BID
     Route: 048
     Dates: start: 20050702
  11. CEFAZOLIN [Concomitant]
     Dosage: 500 MG, TID
     Route: 042
     Dates: start: 20050712
  12. LEVAQUIN [Concomitant]
     Dosage: UNK
     Route: 048
     Dates: start: 20050501
  13. TRASYLOL [Suspect]
     Indication: VENTRICULAR ASSIST DEVICE INSERTION
     Dosage: 50CC/ HOUR INFUSION
     Route: 042
     Dates: start: 20050807, end: 20050807
  14. TRASYLOL [Suspect]
     Indication: DEVICE LEAD ISSUE
  15. HEPARIN [Concomitant]
     Dosage: UNK
     Route: 042
     Dates: start: 20050703, end: 20050708
  16. MILRINONE [Concomitant]
     Dosage: UNK
     Route: 042
     Dates: start: 20050806
  17. LISINOPRIL [Concomitant]
     Dosage: 20 MG, QD
     Route: 048
  18. VANCOMYCIN [Concomitant]
     Dosage: 1 GRAM
     Route: 042
     Dates: start: 20050807
  19. CALCIUM CHLORIDE [Concomitant]
     Dosage: 1 GRAM
     Route: 042
     Dates: start: 20050807, end: 20050807
  20. TRASYLOL [Suspect]
  21. MILRINONE [Concomitant]
     Dosage: UNK
     Route: 042
     Dates: start: 20050703, end: 20050708
  22. PLASMA [Concomitant]
     Dosage: 10 U, ONCE
     Route: 042
     Dates: start: 20050807
  23. MILRINONE [Concomitant]
     Dosage: UNK
     Route: 042
     Dates: start: 20050601
  24. CEFEPIME [Concomitant]
     Dosage: 1 GRAM
     Route: 042
     Dates: start: 20050806
  25. AMIODARONE HCL [Concomitant]
     Dosage: UNK
     Route: 042
     Dates: start: 20050806
  26. MEXILETINE HYDROCHLORIDE [Concomitant]
     Dosage: 150 MG, TID
     Route: 048
  27. VANCOMYCIN [Concomitant]
     Dosage: TWO GRAM ONCE THEN ONE GRAM/TWICE DAILY
     Route: 042
     Dates: start: 20050701, end: 20050806
  28. SYNTHROID [Concomitant]
     Dosage: 0.05 MG, QD
     Route: 048
  29. TRASYLOL [Suspect]
     Indication: HEART TRANSPLANT
  30. AMICAR [Concomitant]
     Dosage: UNK
     Dates: start: 20050820
  31. RED BLOOD CELLS [Concomitant]
     Dosage: 16 U, ONCE
     Route: 042
     Dates: start: 20050807
  32. FUROSEMIDE [Concomitant]
     Route: 048
  33. FUROSEMIDE [Concomitant]
     Dosage: UNK
     Route: 042
     Dates: start: 20050630
  34. WARFARIN SODIUM [Concomitant]
     Route: 048

REACTIONS (9)
  - RENAL IMPAIRMENT [None]
  - STRESS [None]
  - RENAL FAILURE [None]
  - RENAL INJURY [None]
  - EMOTIONAL DISTRESS [None]
  - UNEVALUABLE EVENT [None]
  - FEAR [None]
  - ANXIETY [None]
  - PAIN [None]
